FAERS Safety Report 14484610 (Version 2)
Quarter: 2018Q1

REPORT INFORMATION
  Report Type: Report from Study
  Country: US (occurrence: US)
  Receive Date: 20180205
  Receipt Date: 20180210
  Transmission Date: 20180509
  Serious: No
  Sender: FDA-Public Use
  Company Number: US-SHIRE-US201802730

PATIENT
  Age: 44 Year
  Sex: Female

DRUGS (1)
  1. NATPARA (PARATHYROID HORMONE) [Suspect]
     Active Substance: PARATHYROID HORMONE
     Indication: HYPOPARATHYROIDISM
     Dosage: 100 ?G, 1X/DAY:QD
     Route: 058
     Dates: start: 20160311

REACTIONS (5)
  - No adverse event [Unknown]
  - Inappropriate schedule of drug administration [Recovering/Resolving]
  - Product quality issue [Unknown]
  - Blood calcium decreased [Recovered/Resolved]
  - Malabsorption [Unknown]

NARRATIVE: CASE EVENT DATE: 20180118
